FAERS Safety Report 16636207 (Version 1)
Quarter: 2019Q3

REPORT INFORMATION
  Report Type: Spontaneous
  Country: US (occurrence: US)
  Receive Date: 20190726
  Receipt Date: 20190726
  Transmission Date: 20191004
  Serious: No
  Sender: FDA-Public Use
  Company Number: US-PFIZER INC-2019315598

PATIENT
  Sex: Female

DRUGS (4)
  1. LYRICA [Suspect]
     Active Substance: PREGABALIN
     Dosage: 120 MG, 3X/DAY (FOR 2 TO 3 WEEKS)
  2. LYRICA [Suspect]
     Active Substance: PREGABALIN
     Dosage: 125 MG, 3X/DAY (FOR 2 TO 3 WEEKS)
  3. LYRICA [Suspect]
     Active Substance: PREGABALIN
     Indication: SCIATICA
     Dosage: 160 MG, DAILY
  4. LYRICA [Suspect]
     Active Substance: PREGABALIN
     Dosage: 385 MG, DAILY (100 MG IN THE MORNING, 125 IN THE AFTERNOON AND 160 MG AT NIGHT)

REACTIONS (2)
  - Somnolence [Unknown]
  - Disturbance in attention [Unknown]
